FAERS Safety Report 8890016 (Version 2)
Quarter: 2013Q1

REPORT INFORMATION
  Report Type: Spontaneous
  Country: US (occurrence: US)
  Receive Date: 20121107
  Receipt Date: 20130102
  Transmission Date: 20140127
  Serious: No
  Sender: FDA-Public Use
  Company Number: US-PFIZER INC-2012275022

PATIENT
  Age: 84 Year
  Sex: Male

DRUGS (2)
  1. FLECTOR [Suspect]
     Indication: BACK DISORDER
     Dosage: UNK
     Route: 061
     Dates: start: 20121031, end: 20121031
  2. FLECTOR [Suspect]
     Dosage: UNK

REACTIONS (4)
  - Drug ineffective [Unknown]
  - Feeling hot [Unknown]
  - Erythema [Unknown]
  - Product quality issue [Unknown]
